FAERS Safety Report 12530105 (Version 1)
Quarter: 2016Q3

REPORT INFORMATION
  Report Type: Report from Study
  Country: DE (occurrence: DE)
  Receive Date: 20160706
  Receipt Date: 20160706
  Transmission Date: 20161109
  Serious: Yes (Death, Other)
  Sender: FDA-Public Use
  Company Number: DE-TEVA-662893ISR

PATIENT
  Age: 63 Year
  Sex: Male
  Weight: 82 kg

DRUGS (3)
  1. ATG [Concomitant]
     Active Substance: LAPINE T-LYMPHOCYTE IMMUNE GLOBULIN
     Dosage: 817 MILLIGRAM DAILY;
     Route: 042
     Dates: start: 20160507, end: 20160509
  2. FLUDARABINE [Suspect]
     Active Substance: FLUDARABINE PHOSPHATE
     Dosage: 60.4 MILLIGRAM DAILY;
     Route: 042
     Dates: start: 20160505, end: 20160509
  3. BUSULFAN (PIERRE FABRE) [Suspect]
     Active Substance: BUSULFAN
     Dosage: 65.4 MILLIGRAM DAILY;
     Route: 042
     Dates: start: 20160507, end: 20160508

REACTIONS (2)
  - Venoocclusive liver disease [Not Recovered/Not Resolved]
  - Sepsis [Fatal]

NARRATIVE: CASE EVENT DATE: 20160511
